FAERS Safety Report 6925120-9 (Version None)
Quarter: 2010Q3

REPORT INFORMATION
  Report Type: 
  Country: None (occurrence: None)
  Receive Date: 20100816
  Receipt Date: 20100802
  Transmission Date: 20110219
  Serious: Yes (Hospitalization)
  Sender: FDA-Public Use
  Company Number: IT-RANBAXY-2010RR-37092

PATIENT
  Age: 43 Year
  Sex: Female

DRUGS (15)
  1. ZIDOVUDINE [Suspect]
     Indication: HIV INFECTION
  2. LAMIVUDINE [Suspect]
     Indication: HIV INFECTION
  3. INDINAVIR [Suspect]
     Indication: HIV INFECTION
  4. SAQUINAVIR [Suspect]
     Indication: HIV INFECTION
  5. DIDANOSINE [Suspect]
     Indication: HIV INFECTION
  6. STAVUDINE [Suspect]
     Indication: HIV INFECTION
  7. NEVIRAPINE [Suspect]
     Indication: HIV INFECTION
  8. EFAVIRENZ [Suspect]
     Indication: HIV INFECTION
  9. ABACAVIR SULPHATE [Suspect]
     Indication: HIV INFECTION
  10. FOSAMPRENAVIR/RITONAVIR [Suspect]
     Indication: HIV INFECTION
  11. TENOFOVIR DISOPROXIL FUMARATE [Suspect]
     Indication: HIV INFECTION
  12. EMTRICITABINE [Suspect]
     Indication: HIV INFECTION
  13. DARUNAVIR/RITONAVIR [Suspect]
     Indication: HIV INFECTION
  14. PEGINTERFERON ALFA-2A [Suspect]
  15. RIBAVIRIN [Suspect]

REACTIONS (7)
  - ASTHENIA [None]
  - DECREASED APPETITE [None]
  - HEPATOMEGALY [None]
  - HEPATOTOXICITY [None]
  - NAUSEA [None]
  - NEPHROLITHIASIS [None]
  - VOMITING [None]
